FAERS Safety Report 5177977-2 (Version None)
Quarter: 2006Q4

REPORT INFORMATION
  Report Type: 
  Country: None (occurrence: None)
  Receive Date: 20061218
  Receipt Date: 20060801
  Transmission Date: 20070319
  Serious: No
  Sender: FDA-Public Use
  Company Number: US-AMGEN-KDL188650

PATIENT
  Sex: Female

DRUGS (5)
  1. ENBREL [Suspect]
     Indication: PSORIASIS
     Route: 058
     Dates: start: 20040329
  2. ENBREL [Suspect]
     Indication: RHEUMATOID ARTHRITIS
  3. ENBREL [Suspect]
     Indication: PSORIATIC ARTHROPATHY
  4. ARAVA [Concomitant]
     Dates: start: 20020101
  5. METHOTREXATE [Concomitant]
     Dates: start: 20020101

REACTIONS (3)
  - CONDITION AGGRAVATED [None]
  - INJECTION SITE IRRITATION [None]
  - PSORIASIS [None]
